FAERS Safety Report 4648720-8 (Version None)
Quarter: 2005Q2

REPORT INFORMATION
  Report Type: 
  Country: None (occurrence: None)
  Receive Date: 20050427
  Receipt Date: 20050412
  Transmission Date: 20051028
  Serious: Yes (Hospitalization, Other)
  Sender: FDA-Public Use
  Company Number: USA050495478

PATIENT
  Age: 69 Year
  Sex: Male

DRUGS (5)
  1. ALIMTA [Suspect]
     Indication: LUNG SQUAMOUS CELL CARCINOMA STAGE UNSPECIFIED
     Dosage: 500 MG/M2
     Dates: start: 20050404
  2. CARBOPLATIN [Concomitant]
  3. VITAMIN B-12 [Concomitant]
  4. .. [Concomitant]
  5. .. [Concomitant]

REACTIONS (5)
  - BREATH SOUNDS DECREASED [None]
  - CHEST X-RAY ABNORMAL [None]
  - DEHYDRATION [None]
  - PANCREATITIS [None]
  - PLATELET COUNT DECREASED [None]
